FAERS Safety Report 8583179-X (Version None)
Quarter: 2012Q3

REPORT INFORMATION
  Report Type: 
  Country: None (occurrence: None)
  Receive Date: 20120809
  Receipt Date: 20120123
  Transmission Date: 20120928
  Serious: Yes (Death, Hospitalization, Other)
  Sender: FDA-Public Use
  Company Number: PHEH2012US001953

PATIENT
  Sex: Male

DRUGS (2)
  1. VALTURNA [Suspect]
     Dosage: 1 DF (300/320), DAILY
     Route: 048
  2. MORPHINE [Concomitant]
     Indication: PAIN

REACTIONS (5)
  - METASTATIC NEOPLASM [None]
  - SPINAL FRACTURE [None]
  - MALAISE [None]
  - SPINAL CORD NEOPLASM [None]
  - CARDIAC ARREST [None]
